FAERS Safety Report 6567896-9 (Version None)
Quarter: 2010Q1

REPORT INFORMATION
  Report Type: 
  Country: None (occurrence: None)
  Receive Date: 20100203
  Receipt Date: 20100128
  Transmission Date: 20100710
  Serious: Yes (Death, Hospitalization, Other)
  Sender: FDA-Public Use
  Company Number: PHEH2010US00609

PATIENT
  Sex: Female
  Weight: 28.9 kg

DRUGS (12)
  1. EXJADE [Suspect]
     Indication: SERUM FERRITIN INCREASED
     Dosage: 500 MG/DAY
     Route: 048
     Dates: start: 20091008, end: 20100108
  2. EXJADE [Suspect]
     Indication: MYELODYSPLASTIC SYNDROME
  3. ACYCLOVIR [Concomitant]
     Indication: ANTIVIRAL TREATMENT
     Dosage: 170 MG, Q12H
     Route: 042
     Dates: start: 20081006, end: 20100115
  4. ARANESP [Concomitant]
     Indication: ANAEMIA
     Dosage: 25 UG, QW
     Route: 058
     Dates: start: 20091215, end: 20100115
  5. FAMCICLOVIR [Concomitant]
     Indication: PROPHYLAXIS
     Dosage: 250 MG, BID
     Dates: start: 20090403, end: 20100115
  6. PENTAMIDINE [Concomitant]
     Indication: PROPHYLAXIS
     Dosage: 115 MG, QMO
     Route: 058
     Dates: start: 20080731, end: 20100115
  7. CONTRACEPTIVES NOS [Concomitant]
     Dosage: UNK, UNK
     Route: 048
  8. ZOSYN [Concomitant]
     Dosage: 1750 MG, QD
     Dates: start: 20100112, end: 20100115
  9. AMLODIPINE [Concomitant]
     Indication: HYPERTENSION
     Dosage: 8 MG, BID
     Dates: start: 20081022, end: 20100115
  10. NEXIUM [Concomitant]
     Indication: GASTROOESOPHAGEAL REFLUX DISEASE
     Dosage: 20 MG, Q12H
     Route: 042
     Dates: start: 20081007, end: 20100115
  11. FAMOTIDINE [Concomitant]
     Indication: PROPHYLAXIS
     Dosage: 20 MG, QD
     Route: 042
     Dates: start: 20090602, end: 20100115
  12. METHYLPREDNISOLONE [Concomitant]
     Indication: GRAFT VERSUS HOST DISEASE
     Dosage: 30 MG, QD
     Route: 042
     Dates: start: 20081003, end: 20100115

REACTIONS (16)
  - BK VIRUS INFECTION [None]
  - BLOOD ALBUMIN DECREASED [None]
  - BLOOD CALCIUM DECREASED [None]
  - BLOOD CHLORIDE DECREASED [None]
  - BLOOD CREATININE INCREASED [None]
  - BLOOD GLUCOSE INCREASED [None]
  - BLOOD OSMOLARITY INCREASED [None]
  - BLOOD PHOSPHORUS INCREASED [None]
  - BLOOD POTASSIUM DECREASED [None]
  - BLOOD SODIUM DECREASED [None]
  - BLOOD UREA INCREASED [None]
  - CLOSTRIDIUM DIFFICILE COLITIS [None]
  - CONCOMITANT DISEASE AGGRAVATED [None]
  - ENCEPHALOPATHY [None]
  - MICROANGIOPATHY [None]
  - VOMITING [None]
